FAERS Safety Report 16171181 (Version 1)
Quarter: 2019Q2

REPORT INFORMATION
  Report Type: Spontaneous
  Country: FR (occurrence: FR)
  Receive Date: 20190408
  Receipt Date: 20190408
  Transmission Date: 20190711
  Serious: Yes (Other)
  Sender: FDA-Public Use
  Company Number: FR-MYLANLABS-2019M1032099

PATIENT
  Age: 59 Year
  Sex: Male
  Weight: 77 kg

DRUGS (2)
  1. METHOTREXATE. [Suspect]
     Active Substance: METHOTREXATE
     Indication: PRODUCT USED FOR UNKNOWN INDICATION
     Dosage: 20 MILLIGRAM, QW
     Route: 058
     Dates: start: 20180504
  2. ACIDE FOLIQUE [Concomitant]
     Active Substance: FOLIC ACID

REACTIONS (3)
  - Hepatocellular injury [Recovered/Resolved]
  - Asthenia [Recovered/Resolved]
  - Hepatic enzyme increased [Recovered/Resolved]

NARRATIVE: CASE EVENT DATE: 201806
